FAERS Safety Report 8550373-3 (Version None)
Quarter: 2012Q3

REPORT INFORMATION
  Report Type: 
  Country: None (occurrence: None)
  Receive Date: 20120730
  Receipt Date: 20120717
  Transmission Date: 20120928
  Serious: Yes (Other)
  Sender: FDA-Public Use
  Company Number: US-ELI_LILLY_AND_COMPANY-US201205001885

PATIENT
  Age: 72 Year
  Sex: Female

DRUGS (2)
  1. HUMULIN N [Suspect]
     Indication: DIABETES MELLITUS
     Dosage: 72 U, EACH MORNING
     Dates: start: 20010101
  2. HUMULIN N [Suspect]
     Dosage: 74 U, EACH EVENING
     Dates: start: 20010101

REACTIONS (4)
  - RETINAL HAEMORRHAGE [None]
  - RETINAL DETACHMENT [None]
  - VISUAL ACUITY REDUCED [None]
  - SKIN CANCER [None]
